FAERS Safety Report 22299635 (Version 1)
Quarter: 2023Q2

REPORT INFORMATION
  Report Type: Spontaneous
  Country: US (occurrence: None)
  Receive Date: 20230508
  Receipt Date: 20230508
  Transmission Date: 20230721
  Serious: Yes (Hospitalization)
  Sender: FDA-Public Use
  Company Number: None

PATIENT
  Sex: Female

DRUGS (13)
  1. MYCOPHENOLIC ACID [Suspect]
     Active Substance: MYCOPHENOLIC ACID
     Indication: Liver transplant
     Dates: start: 20210312
  2. CLONAZEPAM [Concomitant]
     Active Substance: CLONAZEPAM
  3. SUCRALFATE [Concomitant]
     Active Substance: SUCRALFATE
  4. PANTOPRAZOLE TAB [Concomitant]
  5. DAILY-VITE [Concomitant]
  6. ONDANSETRON [Concomitant]
  7. ACETAMINOPHEN\HYDROCODONE [Concomitant]
     Active Substance: ACETAMINOPHEN\HYDROCODONE
  8. MIDODRINE [Concomitant]
     Active Substance: MIDODRINE
  9. GABAPENTIN [Concomitant]
     Active Substance: GABAPENTIN
  10. ONDANSETRON [Concomitant]
     Active Substance: ONDANSETRON
  11. POLYETH GLYC POW [Concomitant]
  12. AMOXICILLIN\CLAVULANATE POTASSIUM [Concomitant]
     Active Substance: AMOXICILLIN\CLAVULANATE POTASSIUM
  13. TACROLIMUS [Concomitant]
     Active Substance: TACROLIMUS

REACTIONS (2)
  - Urinary tract infection [None]
  - Therapy interrupted [None]
